FAERS Safety Report 18356498 (Version 2)
Quarter: 2020Q4

REPORT INFORMATION
  Report Type: Spontaneous
  Country: JP (occurrence: JP)
  Receive Date: 20201007
  Receipt Date: 20201229
  Transmission Date: 20210114
  Serious: Yes (Death)
  Sender: FDA-Public Use
  Company Number: JP-JNJFOC-20201000001

PATIENT
  Age: 5 Month
  Sex: Female

DRUGS (2)
  1. SILDENAFIL CITRATE. [Suspect]
     Active Substance: SILDENAFIL CITRATE
     Indication: PULMONARY ARTERIAL HYPERTENSION
     Dosage: DOSE UNKNOWN
     Route: 065
  2. TRACLEER [Suspect]
     Active Substance: BOSENTAN
     Indication: PULMONARY ARTERIAL HYPERTENSION
     Dosage: DOSE UNKNOWN
     Route: 048

REACTIONS (3)
  - Interstitial lung disease [Fatal]
  - Pulmonary oedema [Fatal]
  - Acute respiratory distress syndrome [Fatal]
